FAERS Safety Report 8164376-4 (Version None)
Quarter: 2012Q1

REPORT INFORMATION
  Report Type: 
  Country: None (occurrence: None)
  Receive Date: 20120224
  Receipt Date: 20120217
  Transmission Date: 20120608
  Serious: Yes (Other)
  Sender: FDA-Public Use
  Company Number: PHHY2012IT007187

PATIENT
  Age: 47 Year
  Sex: Female

DRUGS (9)
  1. QUETIAPINE [Suspect]
     Dosage: 400 MG, PER DAY
  2. VALPROATE SODIUM [Concomitant]
     Dosage: 1500 MG, QD
  3. SERTRALINE HYDROCHLORIDE [Suspect]
     Indication: OBSESSIVE-COMPULSIVE DISORDER
     Dosage: 100 MG, PER DAY
  4. QUETIAPINE [Suspect]
     Indication: PSYCHOTIC DISORDER
     Dosage: 800 MG, PER DAY
  5. CLONAZEPAM [Concomitant]
     Dosage: 6 MG, QD
  6. BIPERIDEN HYDROCHLORIDE TAB [Concomitant]
     Dosage: 4 MG, QD
  7. ZIPRASIDONE HYDROCHLORIDE [Concomitant]
     Dosage: 160 MG, QD
  8. SERTRALINE HYDROCHLORIDE [Suspect]
     Dosage: 200 MG, PER DAY
  9. LOPERAMIDE HCL [Concomitant]
     Dosage: 2 MG, QD

REACTIONS (3)
  - POSTURE ABNORMAL [None]
  - TREMOR [None]
  - PLEUROTHOTONUS [None]
